FAERS Safety Report 10914847 (Version 1)
Quarter: 2015Q1

REPORT INFORMATION
  Report Type: Spontaneous
  Country: TW (occurrence: TW)
  Receive Date: 20150314
  Receipt Date: 20150314
  Transmission Date: 20150721
  Serious: Yes (Hospitalization)
  Sender: FDA-Public Use
  Company Number: PHHY2015TW029150

PATIENT
  Age: 66 Year
  Sex: Male

DRUGS (14)
  1. TEICOPLANIN [Suspect]
     Active Substance: TEICOPLANIN
     Indication: PERITONITIS
     Route: 065
  2. FLUCONAZOLE. [Suspect]
     Active Substance: FLUCONAZOLE
     Indication: PERITONITIS
     Route: 042
  3. PIPERACILLIN AND TAZOBACTAM [Suspect]
     Active Substance: PIPERACILLIN SODIUM\TAZOBACTAM SODIUM
     Indication: SEPTIC SHOCK
  4. MICAFUNGIN [Suspect]
     Active Substance: MICAFUNGIN
     Indication: SEPTIC SHOCK
  5. CIPROFLOXACIN. [Suspect]
     Active Substance: CIPROFLOXACIN
     Indication: SEPTIC SHOCK
  6. MICAFUNGIN [Suspect]
     Active Substance: MICAFUNGIN
     Indication: PERITONITIS
     Route: 065
  7. FLUCONAZOLE. [Suspect]
     Active Substance: FLUCONAZOLE
     Indication: SEPTIC SHOCK
  8. PIPERACILLIN AND TAZOBACTAM [Suspect]
     Active Substance: PIPERACILLIN SODIUM\TAZOBACTAM SODIUM
     Indication: PERITONITIS
     Route: 065
  9. MEROPENEM. [Suspect]
     Active Substance: MEROPENEM
     Indication: SEPTIC SHOCK
  10. ERTAPENEM [Suspect]
     Active Substance: ERTAPENEM
     Indication: PERITONITIS
     Route: 042
  11. ERTAPENEM [Suspect]
     Active Substance: ERTAPENEM
     Indication: SEPTIC SHOCK
  12. CIPROFLOXACIN. [Suspect]
     Active Substance: CIPROFLOXACIN
     Indication: PERITONITIS
     Route: 065
  13. TEICOPLANIN [Suspect]
     Active Substance: TEICOPLANIN
     Indication: SEPTIC SHOCK
  14. MEROPENEM. [Suspect]
     Active Substance: MEROPENEM
     Indication: PERITONITIS
     Route: 065

REACTIONS (9)
  - Drug-induced liver injury [Recovered/Resolved]
  - Coagulopathy [Recovered/Resolved]
  - Altered state of consciousness [Recovered/Resolved]
  - Hepatic encephalopathy [Recovered/Resolved]
  - Fluid retention [Recovered/Resolved]
  - Shock [Recovered/Resolved]
  - Jaundice [Recovered/Resolved]
  - Hepatic failure [Recovered/Resolved]
  - Acute kidney injury [Recovered/Resolved]
